FAERS Safety Report 5607645-1 (Version None)
Quarter: 2008Q1

REPORT INFORMATION
  Report Type: 
  Country: None (occurrence: None)
  Receive Date: 20080128
  Receipt Date: 20080128
  Transmission Date: 20080703
  Serious: Yes (Life-Threatening, Hospitalization, Other)
  Sender: FDA-Public Use
  Company Number: None

PATIENT
  Age: 62 Year
  Sex: Male
  Weight: 102.0593 kg

DRUGS (1)
  1. VYTORIN [Suspect]
     Indication: LIPIDS INCREASED
     Dosage: ONE -1- 10/80MG TAB DAILY
     Dates: start: 20060110, end: 20080105

REACTIONS (4)
  - AORTIC ARTERIOSCLEROSIS [None]
  - HYPOAESTHESIA [None]
  - ILL-DEFINED DISORDER [None]
  - NERVOUS SYSTEM DISORDER [None]
